FAERS Safety Report 5914601-2 (Version None)
Quarter: 2008Q4

REPORT INFORMATION
  Report Type: 
  Country: None (occurrence: None)
  Receive Date: 20081010
  Receipt Date: 20081006
  Transmission Date: 20090506
  Serious: Yes (Other)
  Sender: FDA-Public Use
  Company Number: US-BAYER-200812632BCC

PATIENT
  Age: 77 Year
  Sex: Female
  Weight: 58 kg

DRUGS (2)
  1. ALEVE [Suspect]
     Indication: MUSCULOSKELETAL PAIN
     Dosage: TOTAL DAILY DOSE: 440 MG  UNIT DOSE: 220 MG
     Route: 048
     Dates: start: 20080620, end: 20080624
  2. FOSAMAX [Concomitant]

REACTIONS (3)
  - ABDOMINAL DISTENSION [None]
  - HAEMATOCHEZIA [None]
  - RECTAL HAEMORRHAGE [None]
